FAERS Safety Report 21035551 (Version 1)
Quarter: 2022Q3

REPORT INFORMATION
  Report Type: Spontaneous
  Country: US (occurrence: US)
  Receive Date: 20220701
  Receipt Date: 20220701
  Transmission Date: 20221026
  Serious: Yes (Death, Other)
  Sender: FDA-Public Use
  Company Number: US-GILEAD-2022-0588086

PATIENT
  Age: 35 Year
  Sex: Male

DRUGS (1)
  1. HARVONI [Suspect]
     Active Substance: LEDIPASVIR\SOFOSBUVIR
     Indication: Hepatitis C
     Dosage: UNK
     Route: 065

REACTIONS (6)
  - Death [Fatal]
  - Bile duct cancer [Unknown]
  - Abdominal pain upper [Unknown]
  - Yellow skin [Unknown]
  - Abdominal distension [Unknown]
  - Intra-abdominal fluid collection [Unknown]
